FAERS Safety Report 5914690-5 (Version None)
Quarter: 2008Q4

REPORT INFORMATION
  Report Type: 
  Country: None (occurrence: None)
  Receive Date: 20081010
  Receipt Date: 20081003
  Transmission Date: 20090506
  Serious: Yes (Other)
  Sender: FDA-Public Use
  Company Number: SE-JNJFOC-20081000993

PATIENT
  Age: 20 Year
  Sex: Male

DRUGS (1)
  1. ORTHO EVRA [Suspect]
     Indication: OFF LABEL USE
     Route: 062

REACTIONS (3)
  - DRUG ADMINISTRATION ERROR [None]
  - FLATULENCE [None]
  - TESTICULAR PAIN [None]
